FAERS Safety Report 12085764 (Version 3)
Quarter: 2016Q1

REPORT INFORMATION
  Report Type: Spontaneous
  Country: US (occurrence: US)
  Receive Date: 20160217
  Receipt Date: 20160328
  Transmission Date: 20160526
  Serious: Yes (Death, Hospitalization)
  Sender: FDA-Public Use
  Company Number: US-CELGENE-USA-2016021029

PATIENT
  Age: 85 Year
  Sex: Male
  Weight: 81 kg

DRUGS (33)
  1. DEMCIZUMAB [Suspect]
     Active Substance: DEMCIZUMAB
     Indication: PANCREATIC CARCINOMA METASTATIC
     Route: 041
     Dates: start: 20151216, end: 20151216
  2. PREDNISONE. [Concomitant]
     Active Substance: PREDNISONE
     Indication: RASH MACULO-PAPULAR
  3. SENNA [Concomitant]
     Active Substance: SENNA LEAF\SENNOSIDES\SENNOSIDES A AND B
     Indication: CONSTIPATION
     Route: 065
     Dates: start: 20151219
  4. GEMCITABINE [Suspect]
     Active Substance: GEMCITABINE\GEMCITABINE HYDROCHLORIDE
     Route: 041
     Dates: start: 20151223, end: 20151223
  5. FUROSEMIDE. [Concomitant]
     Active Substance: FUROSEMIDE
     Indication: DYSPNOEA
     Route: 065
     Dates: start: 20160201
  6. HEPARIN PORCINE [Concomitant]
     Indication: DYSPNOEA
  7. ABRAXANE [Suspect]
     Active Substance: PACLITAXEL
     Route: 041
     Dates: start: 20151223, end: 20151223
  8. DEMCIZUMAB [Suspect]
     Active Substance: DEMCIZUMAB
     Route: 065
     Dates: start: 20160127
  9. HEPARIN PORCINE [Concomitant]
     Indication: ORTHOPNOEA
     Route: 065
     Dates: start: 20160201
  10. MANNATECH AMBROTOSE COMPLEX [Concomitant]
     Indication: SUPPLEMENTATION THERAPY
     Route: 065
     Dates: start: 2015
  11. MANNATECH OPTIMAL SUPPORT [Concomitant]
     Indication: SUPPLEMENTATION THERAPY
     Route: 065
     Dates: start: 2015
  12. METFORMIN [Concomitant]
     Active Substance: METFORMIN HYDROCHLORIDE
     Indication: TYPE 2 DIABETES MELLITUS
     Route: 065
     Dates: start: 20150809
  13. MILK OF MAGNESIA [Concomitant]
     Active Substance: MAGNESIUM HYDROXIDE
     Indication: CONSTIPATION
     Route: 065
     Dates: start: 20151219
  14. LOSARTAN. [Concomitant]
     Active Substance: LOSARTAN
     Indication: HYPERTENSION
     Route: 048
     Dates: start: 20100228
  15. ABRAXANE [Suspect]
     Active Substance: PACLITAXEL
     Indication: PANCREATIC CARCINOMA METASTATIC
     Route: 041
     Dates: start: 20151216, end: 20151216
  16. ABRAXANE [Suspect]
     Active Substance: PACLITAXEL
     Route: 041
     Dates: start: 20151230, end: 20151230
  17. ABRAXANE [Suspect]
     Active Substance: PACLITAXEL
     Route: 041
     Dates: start: 20160120, end: 20160120
  18. GEMCITABINE [Suspect]
     Active Substance: GEMCITABINE\GEMCITABINE HYDROCHLORIDE
     Route: 041
     Dates: start: 20160127, end: 20160127
  19. MANNATECH NUTRIVERUS [Concomitant]
     Indication: SUPPLEMENTATION THERAPY
     Route: 065
     Dates: start: 2015
  20. OMEPRAZOLE. [Concomitant]
     Active Substance: OMEPRAZOLE
     Indication: OESOPHAGEAL STENOSIS
  21. PREDNISONE. [Concomitant]
     Active Substance: PREDNISONE
     Indication: RASH MACULO-PAPULAR
     Route: 065
     Dates: start: 20160112, end: 20160113
  22. GEMCITABINE [Suspect]
     Active Substance: GEMCITABINE\GEMCITABINE HYDROCHLORIDE
     Route: 041
     Dates: start: 20160113, end: 20160113
  23. GEMCITABINE [Suspect]
     Active Substance: GEMCITABINE\GEMCITABINE HYDROCHLORIDE
     Route: 041
     Dates: start: 20160120, end: 20160120
  24. HEPARIN PORCINE [Concomitant]
     Indication: CHEST DISCOMFORT
     Route: 065
     Dates: start: 20160111, end: 20160111
  25. CARVEDILOL. [Concomitant]
     Active Substance: CARVEDILOL
     Indication: PRODUCT USED FOR UNKNOWN INDICATION
     Route: 048
     Dates: start: 20160119
  26. ABRAXANE [Suspect]
     Active Substance: PACLITAXEL
     Route: 041
     Dates: start: 20160113, end: 20160113
  27. GEMCITABINE [Suspect]
     Active Substance: GEMCITABINE\GEMCITABINE HYDROCHLORIDE
     Indication: PANCREATIC CARCINOMA METASTATIC
     Route: 041
     Dates: start: 20151216, end: 20151216
  28. MANNATECH PLUS [Concomitant]
     Indication: SUPPLEMENTATION THERAPY
     Route: 065
     Dates: start: 2015
  29. OMEPRAZOLE. [Concomitant]
     Active Substance: OMEPRAZOLE
     Indication: OESOPHAGEAL STENOSIS
     Route: 065
     Dates: start: 19960520
  30. ABRAXANE [Suspect]
     Active Substance: PACLITAXEL
     Route: 065
     Dates: start: 20160127, end: 20160127
  31. GEMCITABINE [Suspect]
     Active Substance: GEMCITABINE\GEMCITABINE HYDROCHLORIDE
     Route: 041
     Dates: start: 20151230, end: 20151230
  32. DEMCIZUMAB [Suspect]
     Active Substance: DEMCIZUMAB
     Route: 041
     Dates: start: 20151230, end: 20151230
  33. ATORVASTATIN [Concomitant]
     Active Substance: ATORVASTATIN
     Indication: HYPERCHOLESTEROLAEMIA
     Dosage: 50 MILLIGRAM
     Route: 065
     Dates: start: 20140523

REACTIONS (4)
  - Angina pectoris [Not Recovered/Not Resolved]
  - Acute myocardial infarction [Fatal]
  - Cardiac failure congestive [Not Recovered/Not Resolved]
  - Dyspnoea [Not Recovered/Not Resolved]

NARRATIVE: CASE EVENT DATE: 20160126
